FAERS Safety Report 7531868-8 (Version None)
Quarter: 2011Q2

REPORT INFORMATION
  Report Type: 
  Country: None (occurrence: None)
  Receive Date: 20110608
  Receipt Date: 20110605
  Transmission Date: 20111010
  Serious: Yes (Death)
  Sender: FDA-Public Use
  Company Number: JP-ABBOTT-11P-087-0697258-00

PATIENT
  Age: 10 Year
  Sex: Male
  Weight: 33 kg

DRUGS (7)
  1. ROCURONIUM BROMIDE [Concomitant]
     Indication: MUSCLE RELAXANT THERAPY
     Dosage: 25MG/DAY
     Route: 042
     Dates: start: 20081017, end: 20081017
  2. SEVOFLURANE [Suspect]
     Indication: GENERAL ANAESTHESIA
     Dosage: 1.5-1.8%
     Route: 055
     Dates: start: 20081017, end: 20081017
  3. CEFAMEZIN ALPHA [Concomitant]
     Indication: INFECTION PROPHYLAXIS
     Dosage: 0.6G/DAY
     Route: 042
     Dates: start: 20081017, end: 20081017
  4. PROPOFOL [Concomitant]
     Indication: INDUCTION OF ANAESTHESIA
     Dosage: 100MG/DAY
     Route: 042
     Dates: start: 20081017, end: 20081017
  5. ULTIVA [Concomitant]
     Indication: ANALGESIC THERAPY
     Dosage: 100-300 MCG/HR
     Route: 042
     Dates: start: 20081017, end: 20081017
  6. FENTANYL CITRATE [Concomitant]
     Indication: ANALGESIC THERAPY
     Dosage: 100MCG/DAY
     Route: 042
     Dates: start: 20081017, end: 20081017
  7. FLURBIPROFEN [Concomitant]
     Indication: ANALGESIC THERAPY
     Dosage: 30MG/DAY
     Route: 042
     Dates: start: 20081017, end: 20081017

REACTIONS (1)
  - HYPERTHERMIA MALIGNANT [None]
